FAERS Safety Report 9687683 (Version 1)
Quarter: 2013Q4

REPORT INFORMATION
  Report Type: Spontaneous
  Country: US (occurrence: None)
  Receive Date: 20131113
  Receipt Date: 20131113
  Transmission Date: 20140711
  Serious: Yes (Hospitalization)
  Sender: FDA-Public Use
  Company Number: None

PATIENT
  Age: 65 Year
  Sex: Male

DRUGS (1)
  1. ERTAPENEM [Suspect]
     Route: 042

REACTIONS (3)
  - Muscle twitching [None]
  - Convulsion [None]
  - Fall [None]
